FAERS Safety Report 6391123-9 (Version None)
Quarter: 2009Q4

REPORT INFORMATION
  Report Type: 
  Country: None (occurrence: None)
  Receive Date: 20091006
  Receipt Date: 20091006
  Transmission Date: 20100525
  Serious: Yes (Other)
  Sender: FDA-Public Use
  Company Number: None

PATIENT
  Age: 46 Year
  Sex: Male
  Weight: 68.0396 kg

DRUGS (4)
  1. HYDROXYZINE [Suspect]
     Indication: INSOMNIA
     Dosage: 25MG NIGHTLY PO  : 50MG INCREASED FROM 25MG NIGHT PO
     Route: 048
     Dates: start: 20090930, end: 20091003
  2. HYDROXYZINE [Suspect]
     Indication: POOR QUALITY SLEEP
     Dosage: 25MG NIGHTLY PO  : 50MG INCREASED FROM 25MG NIGHT PO
     Route: 048
     Dates: start: 20090930, end: 20091003
  3. HYDROXYZINE [Suspect]
     Indication: INSOMNIA
     Dosage: 25MG NIGHTLY PO  : 50MG INCREASED FROM 25MG NIGHT PO
     Route: 048
     Dates: start: 20091004, end: 20091004
  4. HYDROXYZINE [Suspect]
     Indication: POOR QUALITY SLEEP
     Dosage: 25MG NIGHTLY PO  : 50MG INCREASED FROM 25MG NIGHT PO
     Route: 048
     Dates: start: 20091004, end: 20091004

REACTIONS (4)
  - ABNORMAL DREAMS [None]
  - HALLUCINATION [None]
  - NIGHTMARE [None]
  - POOR QUALITY SLEEP [None]
